FAERS Safety Report 20966655 (Version 1)
Quarter: 2022Q2

REPORT INFORMATION
  Report Type: Spontaneous
  Country: US (occurrence: None)
  Receive Date: 20220615
  Receipt Date: 20220615
  Transmission Date: 20220721
  Serious: Yes (Hospitalization, Disabling)
  Sender: FDA-Public Use
  Company Number: None

PATIENT
  Age: 66 Year
  Sex: Female

DRUGS (11)
  1. PROLIA [Suspect]
     Active Substance: DENOSUMAB
     Indication: Osteoporosis
     Dosage: OTHER FREQUENCY : Q 6 MONTHS;?
     Route: 058
  2. VITAMIN A [Concomitant]
     Active Substance: VITAMIN A
  3. ATENOLOL [Concomitant]
     Active Substance: ATENOLOL
  4. citalopram 20ng [Concomitant]
  5. FUROSEMIDE [Concomitant]
     Active Substance: FUROSEMIDE
  6. OXYBUTYNIN [Concomitant]
     Active Substance: OXYBUTYNIN
  7. OXYCODONE [Concomitant]
     Active Substance: OXYCODONE
  8. SPIRONOLACTONE [Concomitant]
     Active Substance: SPIRONOLACTONE
  9. TUMS [Concomitant]
     Active Substance: CALCIUM CARBONATE
  10. URSODIOL [Concomitant]
     Active Substance: URSODIOL
  11. lactulose 10g/15ml [Concomitant]

REACTIONS (2)
  - Fall [None]
  - Pelvic fracture [None]

NARRATIVE: CASE EVENT DATE: 20220603
